FAERS Safety Report 13527502 (Version 2)
Quarter: 2017Q2

REPORT INFORMATION
  Report Type: Spontaneous
  Country: US (occurrence: US)
  Receive Date: 20170509
  Receipt Date: 20170620
  Transmission Date: 20170830
  Serious: Yes (Hospitalization)
  Sender: FDA-Public Use
  Company Number: US-ASTRAZENECA-2017SE48044

PATIENT
  Age: 647 Month
  Sex: Female

DRUGS (1)
  1. TUDORZA PRESSAIR [Suspect]
     Active Substance: ACLIDINIUM BROMIDE
     Route: 055

REACTIONS (8)
  - Memory impairment [Not Recovered/Not Resolved]
  - Drug dose omission [Not Recovered/Not Resolved]
  - Dyspnoea [Unknown]
  - Fall [Unknown]
  - Dysstasia [Not Recovered/Not Resolved]
  - Rib fracture [Unknown]
  - Pain [Not Recovered/Not Resolved]
  - Product quality issue [Unknown]

NARRATIVE: CASE EVENT DATE: 201704
